FAERS Safety Report 9394949 (Version 1)
Quarter: 2013Q3

REPORT INFORMATION
  Report Type: Spontaneous
  Country: US (occurrence: US)
  Receive Date: 20130711
  Receipt Date: 20130711
  Transmission Date: 20140515
  Serious: No
  Sender: FDA-Public Use
  Company Number: US-COVIDIEN/TYCO HEALTHCARE/MALLINCKRODT-T201301823

PATIENT
  Age: 64 Year
  Sex: Female

DRUGS (3)
  1. OXYCODONE [Suspect]
     Indication: PAIN
     Dosage: 5 MG, TID
     Route: 048
     Dates: start: 2013
  2. METHADONE [Concomitant]
  3. MORPHINE                           /00036302/ [Concomitant]

REACTIONS (3)
  - Malaise [Recovering/Resolving]
  - Somnolence [Recovering/Resolving]
  - Abdominal pain [Recovering/Resolving]
